FAERS Safety Report 9850086 (Version 1)
Quarter: 2014Q1

REPORT INFORMATION
  Report Type: Spontaneous
  Country: US (occurrence: None)
  Receive Date: 20140127
  Receipt Date: 20140127
  Transmission Date: 20141002
  Serious: Yes (Hospitalization)
  Sender: FDA-Public Use
  Company Number: None

PATIENT
  Age: 69 Year
  Sex: Female
  Weight: 83 kg

DRUGS (3)
  1. BENDAMUSTINE HYDROCHLORIDE [Suspect]
  2. PS-341 (BORTEZOMIB; VELCADE (681239) [Suspect]
  3. RITUXIMAB [Suspect]

REACTIONS (9)
  - Vomiting [None]
  - Tremor [None]
  - Feeling cold [None]
  - Pyrexia [None]
  - Dysphagia [None]
  - Anaemia [None]
  - Lymphoma [None]
  - Neutropenia [None]
  - Blood potassium decreased [None]
